FAERS Safety Report 9763562 (Version 1)
Quarter: 2013Q4

REPORT INFORMATION
  Report Type: Spontaneous
  Country: IT (occurrence: IT)
  Receive Date: 20131216
  Receipt Date: 20131216
  Transmission Date: 20140711
  Serious: Yes (Death)
  Sender: FDA-Public Use
  Company Number: PHHY2013IT144698

PATIENT
  Age: 77 Year
  Sex: Male

DRUGS (3)
  1. OXALIPLATIN [Suspect]
     Indication: CHEMOTHERAPY
     Route: 042
     Dates: start: 201211
  2. CAPECITABINE [Concomitant]
     Indication: CHEMOTHERAPY
     Dates: start: 201211
  3. FOLINIC ACID [Concomitant]
     Indication: CHEMOTHERAPY
     Dates: start: 201211

REACTIONS (15)
  - Death [Fatal]
  - Thrombotic thrombocytopenic purpura [Fatal]
  - Haemolytic anaemia [Fatal]
  - Oxygen saturation decreased [Fatal]
  - Heart rate increased [Fatal]
  - Dyspnoea [Fatal]
  - Pyrexia [Fatal]
  - Blood pressure increased [Fatal]
  - Thrombocytopenia [Fatal]
  - Anaemia [Fatal]
  - Renal failure [Fatal]
  - Platelet count decreased [Fatal]
  - Haemoglobin decreased [Fatal]
  - Renal impairment [Fatal]
  - Convulsion [Fatal]
